FAERS Safety Report 25614949 (Version 1)
Quarter: 2025Q3

REPORT INFORMATION
  Report Type: Spontaneous
  Country: CA (occurrence: CA)
  Receive Date: 20250729
  Receipt Date: 20250729
  Transmission Date: 20251020
  Serious: Yes (Other)
  Sender: CELLTRION
  Company Number: CA-CELLTRION INC.-2024CA021654

PATIENT

DRUGS (7)
  1. TRUXIMA [Suspect]
     Active Substance: RITUXIMAB-ABBS
     Indication: Rheumatoid arthritis
     Route: 042
     Dates: start: 20241108
  2. METHOTREXATE [Concomitant]
     Active Substance: METHOTREXATE
  3. MAGNESIUM [Concomitant]
     Active Substance: MAGNESIUM
  4. ZINC [Concomitant]
     Active Substance: ZINC
  5. FOLIC ACID [Concomitant]
     Active Substance: FOLIC ACID
  6. BIOTIN [Concomitant]
     Active Substance: BIOTIN
  7. PREDNISONE [Concomitant]
     Active Substance: PREDNISONE

REACTIONS (4)
  - Bell^s palsy [Recovering/Resolving]
  - Synovitis [Unknown]
  - Symptom recurrence [Unknown]
  - Off label use [Unknown]
